FAERS Safety Report 8112276-8 (Version None)
Quarter: 2012Q1

REPORT INFORMATION
  Report Type: 
  Country: None (occurrence: None)
  Receive Date: 20120203
  Receipt Date: 20120203
  Transmission Date: 20120608
  Serious: Yes (Other)
  Sender: FDA-Public Use
  Company Number: None

PATIENT
  Sex: Female
  Weight: 56.699 kg

DRUGS (2)
  1. VELIVET [Suspect]
     Indication: PREMENSTRUAL SYNDROME
     Dosage: 1PILL
     Route: 048
     Dates: start: 20110501, end: 20120202
  2. VELIVET [Suspect]
     Indication: CONTRACEPTION
     Dosage: 1PILL
     Route: 048
     Dates: start: 20110501, end: 20120202

REACTIONS (2)
  - POLYMENORRHOEA [None]
  - PRODUCT QUALITY ISSUE [None]
